FAERS Safety Report 5901079-8 (Version None)
Quarter: 2008Q3

REPORT INFORMATION
  Report Type: 
  Country: None (occurrence: None)
  Receive Date: 20080929
  Receipt Date: 20080916
  Transmission Date: 20090109
  Serious: Yes (Other)
  Sender: FDA-Public Use
  Company Number: US-ROCHE-581226

PATIENT
  Sex: Male
  Weight: 68 kg

DRUGS (1)
  1. ACCUTANE [Suspect]
     Indication: ACNE
     Dosage: FORM: PILL. FREQUENCY: BID ALTERNATE WITH QD
     Route: 048
     Dates: start: 20080610

REACTIONS (2)
  - SURGICAL FAILURE [None]
  - ULNAR NERVE INJURY [None]
